FAERS Safety Report 21942566 (Version 1)
Quarter: 2023Q1

REPORT INFORMATION
  Report Type: Report from Study
  Country: US (occurrence: US)
  Receive Date: 20230202
  Receipt Date: 20230202
  Transmission Date: 20230418
  Serious: No
  Sender: FDA-Public Use
  Company Number: US-EXELIXIS-CABO-22058053

PATIENT
  Sex: Male

DRUGS (1)
  1. CABOMETYX [Suspect]
     Active Substance: CABOZANTINIB S-MALATE
     Indication: Adrenal gland cancer
     Dosage: 40 MG, QD
     Route: 048
     Dates: start: 202208, end: 20221116

REACTIONS (8)
  - Skin disorder [Unknown]
  - Hypoaesthesia oral [Unknown]
  - Ageusia [Unknown]
  - Rhinorrhoea [Unknown]
  - Alopecia [Unknown]
  - Hair colour changes [Unknown]
  - COVID-19 [Recovered/Resolved]
  - Off label use [Unknown]
